FAERS Safety Report 18960007 (Version 1)
Quarter: 2021Q1

REPORT INFORMATION
  Report Type: Report from Study
  Country: DE (occurrence: MX)
  Receive Date: 20210302
  Receipt Date: 20210302
  Transmission Date: 20210420
  Serious: Yes (Death)
  Sender: FDA-Public Use
  Company Number: MX-ELI_LILLY_AND_COMPANY-MX202002003988

PATIENT
  Age: 71 Year
  Sex: Female
  Weight: 55 kg

DRUGS (5)
  1. ENCORAFENIB [Concomitant]
     Active Substance: ENCORAFENIB
     Indication: COLON CANCER
     Dosage: 225 MG, DAILY
     Route: 048
     Dates: start: 20180824, end: 20181204
  2. DIFENIDOL [Concomitant]
     Active Substance: DIPHENIDOL
     Indication: PRODUCT USED FOR UNKNOWN INDICATION
     Dosage: UNK, UNKNOWN
     Route: 065
  3. HYOSCINE BUTYLBROMIDE [Concomitant]
     Active Substance: BUTYLSCOPOLAMINE BROMIDE
     Indication: PRODUCT USED FOR UNKNOWN INDICATION
     Dosage: UNK, UNKNOWN
     Route: 065
  4. CETUXIMAB. [Suspect]
     Active Substance: CETUXIMAB
     Indication: COLON CANCER
     Dosage: 382.5 MG, WEEKLY (1/W)
     Route: 042
     Dates: start: 20180824, end: 20181204
  5. BINIMETINIB [Concomitant]
     Active Substance: BINIMETINIB
     Indication: COLON CANCER
     Dosage: 30 MG, UNK
     Route: 048
     Dates: start: 20180824, end: 20181204

REACTIONS (1)
  - Large intestine perforation [Fatal]

NARRATIVE: CASE EVENT DATE: 20181217
